FAERS Safety Report 6402770-X (Version None)
Quarter: 2009Q4

REPORT INFORMATION
  Report Type: 
  Country: None (occurrence: None)
  Receive Date: 20091016
  Receipt Date: 20070320
  Transmission Date: 20100525
  Serious: Yes (Disabling)
  Sender: FDA-Public Use
  Company Number: US-ASTRAZENECA-2006UW10846

PATIENT
  Sex: Female
  Weight: 110.7 kg

DRUGS (17)
  1. SEROQUEL [Suspect]
     Indication: SLEEP DISORDER
     Dosage: 25-400 MG
     Route: 048
     Dates: start: 20061106
  2. AMARYL [Concomitant]
  3. DARVOCET-N 100 [Concomitant]
  4. HUMALOG [Concomitant]
  5. HYDROCODONE [Concomitant]
  6. HYDROCHLOROTHIAZIDE [Concomitant]
  7. LANTUS [Concomitant]
  8. LASIX [Concomitant]
  9. MORPHINE SULFATE [Concomitant]
  10. IBUPROFEN [Concomitant]
  11. PHENERGAN [Concomitant]
  12. PANTOPRAZOLE SODIUM [Concomitant]
  13. RISPERDAL [Concomitant]
  14. REGLAN [Concomitant]
  15. SYNTHROID [Concomitant]
  16. SYMLIN [Concomitant]
  17. WESTCORT [Concomitant]

REACTIONS (1)
  - ILL-DEFINED DISORDER [None]
